FAERS Safety Report 26000484 (Version 1)
Quarter: 2025Q4

REPORT INFORMATION
  Report Type: Spontaneous
  Country: US (occurrence: US)
  Receive Date: 20251105
  Receipt Date: 20251105
  Transmission Date: 20260117
  Serious: No
  Sender: ANI
  Company Number: US-ANIPHARMA-2025-US-040303

PATIENT
  Age: 80 Year
  Sex: Male

DRUGS (9)
  1. ACID CONTROLLER MAXIMUM S [Concomitant]
  2. XARELTO [Concomitant]
     Active Substance: RIVAROXABAN
  3. FOLIC ACID [Concomitant]
     Active Substance: FOLIC ACID
  4. PREDNISONE [Concomitant]
     Active Substance: PREDNISONE
  5. VITAMIN B12 [Concomitant]
     Active Substance: CYANOCOBALAMIN
  6. VITAMIN D3 [Concomitant]
     Active Substance: CHOLECALCIFEROL
  7. CALCIUM\VITAMIN D [Concomitant]
     Active Substance: CALCIUM\VITAMIN D
  8. METOPROLOL TARTRATE [Concomitant]
     Active Substance: METOPROLOL TARTRATE
  9. CORTICOTROPIN [Suspect]
     Active Substance: CORTICOTROPIN
     Indication: Polymyositis
     Dosage: 80U TWICE WEEKLY
     Route: 058

REACTIONS (3)
  - Muscular weakness [Unknown]
  - Fatigue [Unknown]
  - Insomnia [Unknown]
